FAERS Safety Report 10232566 (Version 1)
Quarter: 2014Q2

REPORT INFORMATION
  Report Type: Spontaneous
  Country: US (occurrence: None)
  Receive Date: 20140506
  Receipt Date: 20140506
  Transmission Date: 20141212
  Serious: Yes (Other)
  Sender: FDA-Public Use
  Company Number: 1221724

PATIENT
  Age: 80 Year
  Sex: Female
  Weight: 58.97 kg

DRUGS (2)
  1. AVASTIN (BEVACIZUMAB) (INJECTION) [Suspect]
     Indication: AGE-RELATED MACULAR DEGENERATION
     Dosage: 25 MG/ML (1.25 MG,4 TO 6 WEEKS), INTRAVITREAL
     Dates: start: 20100105, end: 20130423
  2. AVASTIN (BEVACIZUMAB) (INJECTION) [Suspect]
     Indication: OFF LABEL USE
     Dosage: 25 MG/ML (1.25 MG,4 TO 6 WEEKS), INTRAVITREAL
     Dates: start: 20100105, end: 20130423

REACTIONS (5)
  - Vitreous haemorrhage [None]
  - Inflammation [None]
  - Pain [None]
  - Visual acuity reduced [None]
  - Vision blurred [None]
